FAERS Safety Report 25237551 (Version 1)
Quarter: 2025Q2

REPORT INFORMATION
  Report Type: Report from Study
  Country: US (occurrence: US)
  Receive Date: 20250425
  Receipt Date: 20250425
  Transmission Date: 20250717
  Serious: Yes (Other)
  Sender: ALEXION PHARMACEUTICALS
  Company Number: US-AstraZeneca-CH-00852647A

PATIENT

DRUGS (3)
  1. OSIMERTINIB [Suspect]
     Active Substance: OSIMERTINIB
     Route: 065
  2. NITRIC OXIDE [Concomitant]
     Active Substance: NITRIC OXIDE
     Route: 065
  3. VIAGRA [Concomitant]
     Active Substance: SILDENAFIL CITRATE
     Route: 065

REACTIONS (12)
  - Malignant neoplasm progression [Unknown]
  - Drug ineffective [Unknown]
  - Hypoaesthesia [Unknown]
  - Nail disorder [Unknown]
  - Onychoclasis [Unknown]
  - Alopecia [Unknown]
  - Skin atrophy [Unknown]
  - Eczema [Unknown]
  - Hypoaesthesia [Unknown]
  - Muscle spasms [Unknown]
  - Blood potassium increased [Unknown]
  - Peripheral arterial occlusive disease [Unknown]
